FAERS Safety Report 5782536-4 (Version None)
Quarter: 2008Q2

REPORT INFORMATION
  Report Type: 
  Country: None (occurrence: None)
  Receive Date: 20080623
  Receipt Date: 20080611
  Transmission Date: 20081010
  Serious: Yes (Disabling)
  Sender: FDA-Public Use
  Company Number: CA-PFIZER INC-2008049379

PATIENT
  Age: 38 Year
  Sex: Female
  Weight: 54.545 kg

DRUGS (2)
  1. CHANTIX [Suspect]
  2. ZOLOFT [Concomitant]

REACTIONS (12)
  - ABDOMINAL DISTENSION [None]
  - ABNORMAL BEHAVIOUR [None]
  - ACTIVITIES OF DAILY LIVING IMPAIRED [None]
  - ANOREXIA [None]
  - ASTHENIA [None]
  - CHEST PAIN [None]
  - DECREASED INTEREST [None]
  - EMOTIONAL DISORDER [None]
  - FLATULENCE [None]
  - IMPAIRED WORK ABILITY [None]
  - NAUSEA [None]
  - THOUGHT BLOCKING [None]
